FAERS Safety Report 17899695 (Version 1)
Quarter: 2020Q2

REPORT INFORMATION
  Report Type: Spontaneous
  Country: GB (occurrence: GB)
  Receive Date: 20200616
  Receipt Date: 20200616
  Transmission Date: 20200714
  Serious: Yes (Life-Threatening, Hospitalization, Other)
  Sender: FDA-Public Use
  Company Number: GB-TEVA-2020-GB-1247782

PATIENT
  Age: 73 Year
  Sex: Male
  Weight: 99.6 kg

DRUGS (9)
  1. ZOPICLONE [Concomitant]
     Active Substance: ZOPICLONE
  2. BETAMETHASONE. [Concomitant]
     Active Substance: BETAMETHASONE
  3. WARFARIN [Suspect]
     Active Substance: WARFARIN
     Indication: CEREBROVASCULAR ACCIDENT
     Dosage: 9MG / 10MG ON ALTERNATE DAYS
     Route: 048
     Dates: start: 20171010
  4. SALIVIX [Concomitant]
  5. COCODAMOL [Concomitant]
     Active Substance: ACETAMINOPHEN\CODEINE PHOSPHATE
  6. BISOPROLOL [Concomitant]
     Active Substance: BISOPROLOL
  7. ATORVASTATIN [Concomitant]
     Active Substance: ATORVASTATIN
  8. OLMESARTAN MEDOXOMIL. [Concomitant]
     Active Substance: OLMESARTAN MEDOXOMIL
  9. PARACETAMOL [Concomitant]
     Active Substance: ACETAMINOPHEN

REACTIONS (5)
  - Retroperitoneal haemorrhage [Unknown]
  - Hypoaesthesia [Unknown]
  - International normalised ratio increased [Recovered/Resolved]
  - Pain in extremity [Unknown]
  - Haematoma [Unknown]
